FAERS Safety Report 5835609-1 (Version None)
Quarter: 2008Q3

REPORT INFORMATION
  Report Type: 
  Country: None (occurrence: None)
  Receive Date: 20080806
  Receipt Date: 20080729
  Transmission Date: 20090109
  Serious: Yes (Other)
  Sender: FDA-Public Use
  Company Number: CHPA2008US12801

PATIENT
  Age: 47 Year
  Sex: Male

DRUGS (1)
  1. LAMISIL [Suspect]
     Dosage: UNK, UNK
     Route: 065

REACTIONS (5)
  - BLOOD PRESSURE DECREASED [None]
  - CHEST DISCOMFORT [None]
  - DIZZINESS [None]
  - MALAISE [None]
  - PALPITATIONS [None]
